FAERS Safety Report 5276780-2 (Version None)
Quarter: 2007Q1

REPORT INFORMATION
  Report Type: 
  Country: None (occurrence: None)
  Receive Date: 20070327
  Receipt Date: 20070320
  Transmission Date: 20070707
  Serious: Yes (Hospitalization)
  Sender: FDA-Public Use
  Company Number: FR-AVENTIS-200710981FR

PATIENT
  Age: 12 Year
  Sex: Female

DRUGS (5)
  1. CLAFORAN [Suspect]
     Route: 042
     Dates: start: 20070127, end: 20070216
  2. TARGOCID [Suspect]
     Route: 042
     Dates: start: 20070218, end: 20070218
  3. VANCOMYCIN [Suspect]
     Route: 042
     Dates: start: 20070217, end: 20070217
  4. NETROMYCINE [Concomitant]
     Route: 042
     Dates: start: 20070127, end: 20070210
  5. CORGARD [Concomitant]

REACTIONS (7)
  - CYTOLYTIC HEPATITIS [None]
  - DRUG RASH WITH EOSINOPHILIA AND SYSTEMIC SYMPTOMS [None]
  - EOSINOPHILIA [None]
  - PERSISTENT GENERALISED LYMPHADENOPATHY [None]
  - PURPURA [None]
  - PYREXIA [None]
  - RASH ERYTHEMATOUS [None]
